FAERS Safety Report 24138282 (Version 1)
Quarter: 2024Q3

REPORT INFORMATION
  Report Type: Spontaneous
  Country: FR (occurrence: FR)
  Receive Date: 20240725
  Receipt Date: 20240725
  Transmission Date: 20241016
  Serious: No
  Sender: PFIZER
  Company Number: FR-PFIZER INC-PV202400096212

PATIENT
  Age: 12 Year
  Sex: Female

DRUGS (1)
  1. NGENLA [Suspect]
     Active Substance: SOMATROGON-GHLA
     Dosage: WEEKLY

REACTIONS (2)
  - Injection site pain [Recovered/Resolved]
  - Loss of personal independence in daily activities [Recovered/Resolved]
